FAERS Safety Report 7200915-5 (Version None)
Quarter: 2010Q4

REPORT INFORMATION
  Report Type: 
  Country: None (occurrence: None)
  Receive Date: 20101228
  Receipt Date: 20101222
  Transmission Date: 20110411
  Serious: Yes (Hospitalization)
  Sender: FDA-Public Use
  Company Number: DE-PFIZER INC-2010177226

PATIENT
  Age: 66 Year
  Sex: Female

DRUGS (6)
  1. SUTENT [Suspect]
     Indication: METASTATIC RENAL CELL CARCINOMA
     Dosage: DOSE ACCORDING TO PROTOCOL
     Dates: start: 20101119, end: 20101125
  2. NOVALGIN [Concomitant]
     Dosage: UNK
  3. TRAMADOL [Concomitant]
     Dosage: UNK
  4. CLEXANE [Concomitant]
     Dosage: 0.4 (UNITS NOT PROVIDED)
  5. MOVICOL [Concomitant]
     Dosage: UNK
  6. TORASEMIDE [Concomitant]
     Dosage: 5 MG, UNK

REACTIONS (1)
  - DISORIENTATION [None]
